FAERS Safety Report 7801542-9 (Version None)
Quarter: 2011Q4

REPORT INFORMATION
  Report Type: 
  Country: None (occurrence: None)
  Receive Date: 20111007
  Receipt Date: 20110927
  Transmission Date: 20120403
  Serious: Yes (Hospitalization)
  Sender: FDA-Public Use
  Company Number: GB-PERRIGO-11GB008038

PATIENT
  Age: 34 Year
  Sex: Male
  Weight: 91.67 kg

DRUGS (5)
  1. ALLOPURINOL [Suspect]
     Indication: GOUT
     Dosage: 300 MG, UNK
     Route: 048
     Dates: start: 20110531, end: 20110623
  2. LEVOTHYROXINE SODIUM [Concomitant]
     Indication: HYPOTHYROIDISM
     Dosage: 150 UG
     Route: 048
     Dates: start: 20110511
  3. NAPROXEN SODIUM [Suspect]
     Indication: PRODUCT USED FOR UNKNOWN INDICATION
     Dosage: UNK
     Route: 048
  4. PENICILLIN V [Suspect]
     Indication: TONSILLITIS
     Dosage: UNK
     Route: 048
     Dates: start: 20110621, end: 20110623
  5. DEXAMETHASONE [Concomitant]
     Indication: DERMATITIS
     Dosage: 0.025 %, UNK
     Route: 061

REACTIONS (7)
  - STEVENS-JOHNSON SYNDROME [None]
  - LIP SWELLING [None]
  - OEDEMA PERIPHERAL [None]
  - BLINDNESS TRANSIENT [None]
  - SKIN SWELLING [None]
  - SKIN EXFOLIATION [None]
  - OEDEMA MOUTH [None]
